FAERS Safety Report 10892071 (Version 1)
Quarter: 2015Q1

REPORT INFORMATION
  Report Type: Spontaneous
  Country: FR (occurrence: FR)
  Receive Date: 20150306
  Receipt Date: 20150306
  Transmission Date: 20150721
  Serious: Yes (Hospitalization)
  Sender: FDA-Public Use
  Company Number: FR-NOVOPROD-441054

PATIENT
  Age: 52 Year
  Sex: Male

DRUGS (7)
  1. CRESTOR [Concomitant]
     Active Substance: ROSUVASTATIN CALCIUM
     Dosage: UNK
     Route: 065
  2. TRIATEC                            /00116401/ [Concomitant]
     Active Substance: HYDROCHLOROTHIAZIDE
  3. CELLCEPT [Concomitant]
     Active Substance: MYCOPHENOLATE MOFETIL\MYCOPHENOLATE MOFETIL HYDROCHLORIDE
     Dosage: UNK
     Route: 065
  4. SECTRAL [Concomitant]
     Active Substance: ACEBUTOLOL HYDROCHLORIDE
     Dosage: UNK
     Route: 065
  5. NOVORAPID [Suspect]
     Active Substance: INSULIN ASPART
     Indication: TYPE 1 DIABETES MELLITUS
     Dosage: UNK
     Route: 058
  6. SOLUPRED                           /00016201/ [Concomitant]
     Active Substance: PREDNISOLONE
     Dosage: UNK
     Route: 065
  7. ASPEGIC [Concomitant]
     Active Substance: ASPIRIN DL-LYSINE
     Dosage: UNK
     Route: 065

REACTIONS (2)
  - Hypothermia [Recovered/Resolved]
  - Hypoglycaemic coma [Recovered/Resolved]

NARRATIVE: CASE EVENT DATE: 20150206
